FAERS Safety Report 4754820-4 (Version None)
Quarter: 2005Q3

REPORT INFORMATION
  Report Type: 
  Country: None (occurrence: None)
  Receive Date: 20050825
  Receipt Date: 20050816
  Transmission Date: 20060218
  Serious: Yes (Death, Other)
  Sender: FDA-Public Use
  Company Number: 2005-08-0222

PATIENT
  Age: 9 Year
  Sex: Female

DRUGS (7)
  1. INTERFERON ALFA-2B INJECTABLE [Suspect]
     Indication: HEPATITIS C
     Dosage: 3 MU TIW* SUBCUTANEOUS
     Route: 058
  2. INTERFERON ALFA-2B INJECTABLE [Suspect]
     Indication: HEPATITIS C
     Dosage: 3 MU TIW* SUBCUTANEOUS
     Route: 058
  3. INTERFERON ALFA-2B INJECTABLE [Suspect]
     Indication: HEPATITIS C
     Dosage: 3 MU TIW* SUBCUTANEOUS
     Route: 058
  4. RIBAVIRIN [Suspect]
     Indication: HEPATITIS C
     Dosage: 16 MG/KG/DAY* ORAL SEE IMAGE
  5. RIBAVIRIN [Suspect]
     Indication: HEPATITIS C
     Dosage: 16 MG/KG/DAY* ORAL SEE IMAGE
  6. RIBAVIRIN [Suspect]
     Indication: HEPATITIS C
     Dosage: 16 MG/KG/DAY* ORAL SEE IMAGE
  7. PARACETAMOL [Concomitant]

REACTIONS (12)
  - ASCITES [None]
  - CHOLELITHIASIS [None]
  - DRUG INEFFECTIVE [None]
  - HEPATIC CIRRHOSIS [None]
  - HEPATIC FAILURE [None]
  - HEPATIC FIBROSIS [None]
  - IMMUNOSUPPRESSION [None]
  - LIVER TRANSPLANT [None]
  - LIVER TRANSPLANT REJECTION [None]
  - LYMPHOCYTIC INFILTRATION [None]
  - PORTAL HYPERTENSION [None]
  - PYREXIA [None]
